FAERS Safety Report 5324049-X (Version None)
Quarter: 2007Q2

REPORT INFORMATION
  Report Type: 
  Country: None (occurrence: None)
  Receive Date: 20070509
  Receipt Date: 20070509
  Transmission Date: 20071010
  Serious: No
  Sender: FDA-Public Use
  Company Number: None

PATIENT
  Age: 33 Year
  Sex: Female
  Weight: 56.6996 kg

DRUGS (1)
  1. MIRENA [Suspect]
     Indication: CONTRACEPTION
     Dates: start: 20060321, end: 20070209

REACTIONS (11)
  - ACNE [None]
  - ANGER [None]
  - DEPRESSION [None]
  - DYSPAREUNIA [None]
  - FEELING ABNORMAL [None]
  - INFECTION [None]
  - LOSS OF LIBIDO [None]
  - SCREAMING [None]
  - VIOLENT IDEATION [None]
  - VULVOVAGINAL DISCOMFORT [None]
  - VULVOVAGINAL DRYNESS [None]
